FAERS Safety Report 7767739-1 (Version None)
Quarter: 2011Q3

REPORT INFORMATION
  Report Type: 
  Country: None (occurrence: None)
  Receive Date: 20110922
  Receipt Date: 20100915
  Transmission Date: 20111222
  Serious: Yes (Other)
  Sender: FDA-Public Use
  Company Number: US-ASTRAZENECA-2009UW11479

PATIENT
  Age: 512 Month
  Sex: Male
  Weight: 95.3 kg

DRUGS (6)
  1. MIRTAZAPINE [Concomitant]
  2. SEROQUEL [Suspect]
     Indication: INSOMNIA
     Route: 048
     Dates: start: 20040501, end: 20081231
  3. SEROQUEL [Suspect]
     Indication: DEPRESSION
     Route: 048
     Dates: start: 20040501, end: 20081231
  4. RISPERDAL [Concomitant]
     Dates: start: 20040501, end: 20050501
  5. DEPAKOTE [Concomitant]
  6. SEROQUEL [Suspect]
     Indication: POST-TRAUMATIC STRESS DISORDER
     Route: 048
     Dates: start: 20040501, end: 20081231

REACTIONS (2)
  - DIABETIC COMA [None]
  - TYPE 2 DIABETES MELLITUS [None]
